FAERS Safety Report 6180602-5 (Version None)
Quarter: 2009Q2

REPORT INFORMATION
  Report Type: 
  Country: None (occurrence: None)
  Receive Date: 20090506
  Receipt Date: 20090430
  Transmission Date: 20091009
  Serious: Yes (Other)
  Sender: FDA-Public Use
  Company Number: US-SP-2009-01928

PATIENT
  Age: 57 Year
  Sex: Female

DRUGS (3)
  1. ADACEL [Suspect]
     Indication: IMMUNISATION
     Route: 065
     Dates: start: 20090421
  2. TUBERSOL [Suspect]
     Indication: TUBERCULIN TEST
     Route: 065
     Dates: start: 20090421
  3. TOPROL-XL [Concomitant]

REACTIONS (5)
  - DYSPHONIA [None]
  - OEDEMA PERIPHERAL [None]
  - PAIN IN EXTREMITY [None]
  - PHARYNGEAL OEDEMA [None]
  - TENDERNESS [None]
